FAERS Safety Report 8307094-1 (Version None)
Quarter: 2012Q2

REPORT INFORMATION
  Report Type: 
  Country: None (occurrence: None)
  Receive Date: 20120424
  Receipt Date: 20120424
  Transmission Date: 20120825
  Serious: Yes (Death, Life-Threatening, Hospitalization, Other)
  Sender: FDA-Public Use
  Company Number: CH-PFIZER INC-HQWYE950125MAY05

PATIENT
  Age: 68 Year
  Sex: Male

DRUGS (13)
  1. TAZOBACTAM [Suspect]
     Indication: ASPERGILLOMA
     Dosage: UNK
     Dates: start: 20050212, end: 20050304
  2. CERUBIDINE [Suspect]
     Indication: ACUTE LYMPHOCYTIC LEUKAEMIA
     Dosage: UNKNOWN
     Route: 065
     Dates: start: 20050209, end: 20050307
  3. METHOTREXATE SODIUM [Suspect]
     Indication: ACUTE LYMPHOCYTIC LEUKAEMIA
     Dosage: UNKNOWN
     Route: 065
     Dates: start: 20050209, end: 20050307
  4. BACTRIM [Concomitant]
     Dosage: UNK
     Route: 065
     Dates: start: 20050201, end: 20050301
  5. ONCOVIN [Suspect]
     Indication: ACUTE LYMPHOCYTIC LEUKAEMIA
     Dosage: UNKNOWN
     Route: 065
     Dates: start: 20050209, end: 20050307
  6. CYCLOPHOSPHAMIDE [Suspect]
     Indication: ACUTE LYMPHOCYTIC LEUKAEMIA
     Dosage: UNKNOWN
     Route: 065
     Dates: start: 20050209, end: 20050307
  7. VALTREX [Suspect]
     Indication: ASPERGILLOMA
     Dosage: UNKNOWN
     Route: 065
     Dates: start: 20050220, end: 20050308
  8. PREDNISONE [Concomitant]
     Dosage: UNK
     Route: 065
     Dates: start: 20050209
  9. NAVOBAN [Concomitant]
     Dosage: UNK
     Route: 065
     Dates: start: 20050201, end: 20050301
  10. ASPARAGINASE [Suspect]
     Indication: ACUTE LYMPHOCYTIC LEUKAEMIA
     Dosage: UNKNOWN
     Route: 065
     Dates: start: 20050209, end: 20050307
  11. FUNGIZONE [Suspect]
     Indication: ASPERGILLOMA
     Dosage: UNKNOWN
     Route: 065
     Dates: start: 20050201, end: 20050201
  12. TORSEMIDE [Concomitant]
     Dosage: UNK
     Route: 065
     Dates: start: 20050201, end: 20050301
  13. VFEND [Suspect]
     Indication: ASPERGILLOMA
     Dosage: UNK
     Dates: start: 20050220, end: 20050308

REACTIONS (11)
  - CHOLESTASIS [None]
  - HEPATIC STEATOSIS [None]
  - HEPATIC ENCEPHALOPATHY [None]
  - BLOOD BILIRUBIN INCREASED [None]
  - BRONCHOPULMONARY ASPERGILLOSIS [None]
  - ALANINE AMINOTRANSFERASE INCREASED [None]
  - UPPER GASTROINTESTINAL HAEMORRHAGE [None]
  - RENAL FAILURE ACUTE [None]
  - LOWER GASTROINTESTINAL HAEMORRHAGE [None]
  - MULTI-ORGAN FAILURE [None]
  - CARDIAC DISORDER [None]
